FAERS Safety Report 5996558-1 (Version None)
Quarter: 2008Q4

REPORT INFORMATION
  Report Type: 
  Country: None (occurrence: None)
  Receive Date: 20081212
  Receipt Date: 20081020
  Transmission Date: 20090506
  Serious: No
  Sender: FDA-Public Use
  Company Number: US-ABBOTT-08P-163-0482777-00

PATIENT
  Sex: Male

DRUGS (5)
  1. HUMIRA [Suspect]
     Indication: RHEUMATOID ARTHRITIS
     Route: 058
     Dates: start: 20080901
  2. BUPROPION HCL [Concomitant]
     Indication: ANXIETY
  3. BUPROPION HCL [Concomitant]
     Indication: DEPRESSION
  4. SERTRALINE [Concomitant]
     Indication: ANXIETY
  5. SERTRALINE [Concomitant]
     Indication: DEPRESSION

REACTIONS (4)
  - COUGH [None]
  - FATIGUE [None]
  - LARYNGITIS [None]
  - UPPER RESPIRATORY TRACT CONGESTION [None]
